FAERS Safety Report 20570180 (Version 2)
Quarter: 2022Q1

REPORT INFORMATION
  Report Type: Spontaneous
  Country: IT (occurrence: IT)
  Receive Date: 20220309
  Receipt Date: 20220315
  Transmission Date: 20220423
  Serious: Yes (Death, Other)
  Sender: FDA-Public Use
  Company Number: IT-MINISAL02-847773

PATIENT
  Age: 48 Year
  Sex: Male
  Weight: 98 kg

DRUGS (3)
  1. ZOLPIDEM [Suspect]
     Active Substance: ZOLPIDEM TARTRATE
     Indication: Product used for unknown indication
     Dosage: 10 MILLIGRAM, ONCE A DAY
     Route: 065
     Dates: start: 20201027
  2. ANAFRANIL [Suspect]
     Active Substance: CLOMIPRAMINE HYDROCHLORIDE
     Indication: Product used for unknown indication
     Dosage: 25 MILLIGRAM, ONCE A DAY
     Route: 065
     Dates: start: 20210121
  3. FLUVOXAMINE [Suspect]
     Active Substance: FLUVOXAMINE
     Indication: Product used for unknown indication
     Dosage: 300 MILLIGRAM, ONCE A DAY
     Route: 065
     Dates: start: 20040401

REACTIONS (5)
  - Hallucination [Fatal]
  - Delusion [Fatal]
  - Persecutory delusion [Fatal]
  - Disorganised speech [Fatal]
  - Agitation [Fatal]

NARRATIVE: CASE EVENT DATE: 20210128
